FAERS Safety Report 9009787 (Version 2)
Quarter: 2013Q1

REPORT INFORMATION
  Report Type: Spontaneous
  Country: US (occurrence: US)
  Receive Date: 20130111
  Receipt Date: 20130228
  Transmission Date: 20140127
  Serious: Yes (Other)
  Sender: FDA-Public Use
  Company Number: GXBR2013US000458

PATIENT
  Age: 61 Year
  Sex: Female
  Weight: 99.77 kg

DRUGS (8)
  1. LOSARTAN POTASSIUM [Suspect]
     Indication: HYPERTENSION
     Dosage: 100 MG, QD
     Route: 048
     Dates: start: 20110105, end: 20110205
  2. ACCUPRIL [Suspect]
     Dosage: 20 MG, QD
     Route: 048
  3. METFORMIN [Concomitant]
     Indication: DIABETES MELLITUS
     Dosage: 1000 MG, QD
     Route: 048
  4. ZOLPIDEM [Concomitant]
     Dosage: 1 DF, QD
  5. PRAVASTATIN [Concomitant]
     Dosage: 20 MG, QD
  6. BYETTA [Concomitant]
     Dosage: UNK DF, UNK
  7. LEXAPRO [Concomitant]
     Indication: DEPRESSION
     Dosage: UNK MG, UNK
  8. NEXUM [Concomitant]
     Indication: GASTROOESOPHAGEAL REFLUX DISEASE
     Dosage: UNK MG, UNK

REACTIONS (3)
  - Blood pressure increased [Recovered/Resolved]
  - Cough [Unknown]
  - Drug ineffective [Unknown]
